FAERS Safety Report 4284614-8 (Version None)
Quarter: 2004Q1

REPORT INFORMATION
  Report Type: 
  Country: None (occurrence: None)
  Receive Date: 20040130
  Receipt Date: 20040120
  Transmission Date: 20041129
  Serious: Yes (Hospitalization, Other)
  Sender: FDA-Public Use
  Company Number: HQWYE612629OCT03

PATIENT
  Age: 10 Year
  Sex: Female
  Weight: 41 kg

DRUGS (4)
  1. MYLOTARG [Suspect]
     Indication: ACUTE MYELOID LEUKAEMIA
     Dosage: 3 MG/M^2 1 X PER 1 DFAY, INTRAVENOUS
     Route: 042
     Dates: start: 20031004, end: 20031004
  2. CYTARABINE [Suspect]
     Indication: ACUTE MYELOID LEUKAEMIA
     Dosage: SEE IMAGE
     Dates: start: 20031009, end: 20031011
  3. ASPARAGINASE (ASPARAGINASE) [Suspect]
     Dosage: 7590 UNIT 1 X PER 1 DAY, INTRAMUSCULAR
     Route: 030
     Dates: start: 20031004, end: 20031004
  4. ASPARAGINASE (ASPARAGINASE) [Suspect]
     Dosage: 7590 UNIT 1 X PER 1 DAY, INTRAMUSCULAR
     Route: 030
     Dates: start: 20031011, end: 20031011

REACTIONS (16)
  - ALANINE AMINOTRANSFERASE INCREASED [None]
  - ASCITES [None]
  - ASPARTATE AMINOTRANSFERASE INCREASED [None]
  - BILIRUBIN CONJUGATED INCREASED [None]
  - BLOOD BILIRUBIN INCREASED [None]
  - CHOLELITHIASIS [None]
  - HAEMOGLOBIN DECREASED [None]
  - ILEUS [None]
  - INTESTINAL OBSTRUCTION [None]
  - LOBAR PNEUMONIA [None]
  - PANCREATITIS [None]
  - PLATELET COUNT DECREASED [None]
  - PLEURAL EFFUSION [None]
  - ULTRASOUND DOPPLER ABNORMAL [None]
  - WEIGHT INCREASED [None]
  - WHITE BLOOD CELL COUNT DECREASED [None]
